FAERS Safety Report 7806439-6 (Version None)
Quarter: 2011Q4

REPORT INFORMATION
  Report Type: 
  Country: None (occurrence: None)
  Receive Date: 20111011
  Receipt Date: 20110930
  Transmission Date: 20120403
  Serious: Yes (Other)
  Sender: FDA-Public Use
  Company Number: JP-CTI_01406_2011

PATIENT
  Age: 59 Year
  Sex: Female

DRUGS (2)
  1. 3 UNKNOWN SUSPECT DRUGS [Suspect]
     Indication: PRODUCT USED FOR UNKNOWN INDICATION
     Dosage: DF
     Dates: start: 20100501
  2. MEIACT MS TABLET (CEFDITOREN PIVOXIL) [Suspect]
     Indication: PRODUCT USED FOR UNKNOWN INDICATION
     Dosage: DAILY
     Route: 048
     Dates: start: 20100501, end: 20100501

REACTIONS (1)
  - ANGIOEDEMA [None]
